FAERS Safety Report 23467076 (Version 1)
Quarter: 2024Q1

REPORT INFORMATION
  Report Type: Spontaneous
  Country: US (occurrence: US)
  Receive Date: 20240201
  Receipt Date: 20240201
  Transmission Date: 20240410
  Serious: No
  Sender: FDA-Public Use
  Company Number: US-PAIPHARMA-2023-US-022775

PATIENT
  Age: 86 Year
  Sex: Male
  Weight: 80.74 kg

DRUGS (2)
  1. PLUVICTO [Concomitant]
     Active Substance: LUTETIUM LU-177 VIPIVOTIDE TETRAXETAN
  2. NYSTATIN [Suspect]
     Active Substance: NYSTATIN
     Indication: Candida infection
     Dosage: TAKE 5ML FIVE TIMES DAILY
     Route: 048
     Dates: start: 20230725

REACTIONS (4)
  - Taste disorder [Not Recovered/Not Resolved]
  - Food aversion [Not Recovered/Not Resolved]
  - Tongue coated [Not Recovered/Not Resolved]
  - Off label use [Not Recovered/Not Resolved]

NARRATIVE: CASE EVENT DATE: 20230725
